FAERS Safety Report 13640062 (Version 1)
Quarter: 2017Q2

REPORT INFORMATION
  Report Type: Spontaneous
  Country: US (occurrence: US)
  Receive Date: 20170609
  Receipt Date: 20170609
  Transmission Date: 20170830
  Serious: No
  Sender: FDA-Public Use
  Company Number: US-ROCHE-1097268

PATIENT
  Sex: Female

DRUGS (3)
  1. VALIUM [Suspect]
     Active Substance: DIAZEPAM
     Indication: PRODUCT USED FOR UNKNOWN INDICATION
     Route: 065
  2. CLONAZEPAM. [Suspect]
     Active Substance: CLONAZEPAM
     Indication: VERTIGO
  3. KLONOPIN [Suspect]
     Active Substance: CLONAZEPAM
     Indication: PRODUCT USED FOR UNKNOWN INDICATION

REACTIONS (16)
  - Gait disturbance [Unknown]
  - Thermal burn [Unknown]
  - Hallucination, auditory [Unknown]
  - Head injury [Unknown]
  - Personality change [Unknown]
  - Amnesia [Unknown]
  - Blepharitis [Unknown]
  - Fall [Unknown]
  - Nail operation [Unknown]
  - Clumsiness [Unknown]
  - Surgery [Unknown]
  - Dizziness [Unknown]
  - Contusion [Unknown]
  - Insomnia [Unknown]
  - Vision blurred [Unknown]
  - Malaise [Unknown]
